FAERS Safety Report 26132024 (Version 1)
Quarter: 2025Q4

REPORT INFORMATION
  Report Type: Spontaneous
  Country: US (occurrence: None)
  Receive Date: 20251208
  Receipt Date: 20251208
  Transmission Date: 20260117
  Serious: Yes (Hospitalization)
  Sender: FDA-CTU
  Company Number: None

PATIENT
  Sex: Female

DRUGS (7)
  1. XOLAIR [Suspect]
     Active Substance: OMALIZUMAB
     Indication: Asthma
     Dosage: OTHER QUANTITY : 1 SYRINGE UNDER THE SKIN ;?FREQUENCY : MONTHLY;
     Route: 058
     Dates: start: 20250521
  2. AMILORIDE [Concomitant]
     Active Substance: AMILORIDE
  3. OSCAL 500/D-3 [Concomitant]
  4. THIAMINE HYDROCHLORIDE [Concomitant]
     Active Substance: THIAMINE HYDROCHLORIDE
  5. VITAMIN C [Concomitant]
     Active Substance: ASCORBIC ACID
  6. VITAMIN D [Concomitant]
     Active Substance: VITAMIN D NOS
  7. ZINIC [Concomitant]

REACTIONS (4)
  - Pneumonia [None]
  - Bronchitis [None]
  - Hypoxia [None]
  - Cardiac failure [None]
